FAERS Safety Report 12846985 (Version 9)
Quarter: 2017Q4

REPORT INFORMATION
  Report Type: Report from Study
  Country: IN (occurrence: IN)
  Receive Date: 20161014
  Receipt Date: 20171219
  Transmission Date: 20180320
  Serious: Yes (Hospitalization, Other)
  Sender: FDA-Public Use
  Company Number: PHHY2015IN080725

PATIENT
  Age: 65 Year
  Sex: Male

DRUGS (7)
  1. GLIVEC [Suspect]
     Active Substance: IMATINIB MESYLATE
     Dosage: 300 MG
     Route: 065
     Dates: end: 201703
  2. NEBICARD [Concomitant]
     Active Substance: NEBIVOLOL HYDROCHLORIDE
     Indication: HYPERTENSION
     Dosage: 5 MG, QD
     Route: 048
     Dates: start: 20160312
  3. LASILACTONE [Concomitant]
     Active Substance: FUROSEMIDE\SPIRONOLACTONE
     Indication: DIURETIC THERAPY
     Dosage: 20 MG, QD
     Route: 048
     Dates: start: 20170312
  4. MONOTRATE [Concomitant]
     Indication: ANGINA PECTORIS
     Dosage: 10 MG, BID
     Route: 048
     Dates: start: 20161015
  5. ATORVASTIN [Concomitant]
     Active Substance: ATORVASTATIN
     Indication: BLOOD CHOLESTEROL INCREASED
     Dosage: 40 MG, QHS
     Route: 048
     Dates: start: 20161015
  6. GLIMEPIRIDE. [Concomitant]
     Active Substance: GLIMEPIRIDE
     Indication: DIABETES MELLITUS
     Dosage: 2 MG, BID
     Route: 048
     Dates: start: 20161015
  7. GLIVEC [Suspect]
     Active Substance: IMATINIB MESYLATE
     Indication: CHRONIC MYELOID LEUKAEMIA
     Dosage: 600 MG
     Route: 065

REACTIONS (27)
  - Ventricular hypokinesia [Unknown]
  - Renal impairment [Not Recovered/Not Resolved]
  - Bronchitis [Unknown]
  - Vomiting [Unknown]
  - Blood creatinine increased [Unknown]
  - Tachypnoea [Unknown]
  - Cardiac failure congestive [Unknown]
  - Ejection fraction decreased [Unknown]
  - Full blood count increased [Unknown]
  - Dyspnoea exertional [Recovering/Resolving]
  - Haemoglobin decreased [Not Recovered/Not Resolved]
  - Fluid retention [Unknown]
  - Liver function test abnormal [Unknown]
  - Cardiac disorder [Unknown]
  - Tachycardia [Unknown]
  - Pulmonary oedema [Unknown]
  - Blood pressure increased [Unknown]
  - Dyspnoea [Unknown]
  - Insomnia [Unknown]
  - Drug intolerance [Unknown]
  - Respiratory distress [Unknown]
  - Hepatic vein thrombosis [Unknown]
  - Diarrhoea [Unknown]
  - Left ventricular hypertrophy [Unknown]
  - Chronic obstructive pulmonary disease [Recovered/Resolved]
  - Electrolyte imbalance [Unknown]
  - H1N1 influenza [Unknown]

NARRATIVE: CASE EVENT DATE: 2014
